FAERS Safety Report 22306878 (Version 3)
Quarter: 2023Q2

REPORT INFORMATION
  Report Type: Spontaneous
  Country: US (occurrence: US)
  Receive Date: 20230511
  Receipt Date: 20230520
  Transmission Date: 20230722
  Serious: No
  Sender: FDA-Public Use
  Company Number: US-002147023-NVSC2023US102808

PATIENT
  Sex: Male

DRUGS (1)
  1. TAFLUPROST [Suspect]
     Active Substance: TAFLUPROST
     Indication: Product used for unknown indication
     Dosage: 0.3 ML (30LDP AM US)
     Route: 065

REACTIONS (1)
  - Circumstance or information capable of leading to medication error [Unknown]
